FAERS Safety Report 4866871-X (Version None)
Quarter: 2005Q4

REPORT INFORMATION
  Report Type: 
  Country: None (occurrence: None)
  Receive Date: 20051222
  Receipt Date: 20051208
  Transmission Date: 20060501
  Serious: Yes (Hospitalization)
  Sender: FDA-Public Use
  Company Number: HQWYE916409DEC05

PATIENT
  Age: 72 Year
  Sex: Male

DRUGS (9)
  1. PANTOZOL          (PANTOPRAZOLE) [Suspect]
     Dosage: 40 MG 1X PER 1 DAY ORAL
     Route: 048
     Dates: start: 20051001
  2. ASPIRIN [Suspect]
     Indication: MYOCARDIAL ISCHAEMIA
     Dosage: 100 MG 1X PER 1 DAY ORAL
     Route: 048
     Dates: start: 20050601, end: 20051001
  3. CORDARONE [Suspect]
     Indication: ATRIAL FIBRILLATION
     Dosage: 200  MG 1X PER 1 DAY ORAL
     Route: 048
     Dates: start: 20050601, end: 20051005
  4. MARCUMAR [Suspect]
     Indication: ATRIAL FIBRILLATION
     Dosage: ORAL
     Route: 048
     Dates: start: 20050601, end: 20051015
  5. PREDNISONE [Suspect]
     Indication: FACIAL PALSY
     Dosage: 100 MG 1X PER 1 DAY ORAL
     Route: 048
     Dates: start: 20051001, end: 20051016
  6. VALTREX [Concomitant]
  7. BELOC (METOPROLOL TARTRATE) [Concomitant]
  8. LESCOL [Concomitant]
  9. TORSEMIDE [Concomitant]

REACTIONS (2)
  - INTERNATIONAL NORMALISED RATIO INCREASED [None]
  - MUSCLE HAEMORRHAGE [None]
